FAERS Safety Report 9425617 (Version 1)
Quarter: 2013Q3

REPORT INFORMATION
  Report Type: Spontaneous
  Country: US (occurrence: US)
  Receive Date: 20130729
  Receipt Date: 20130729
  Transmission Date: 20140515
  Serious: No
  Sender: FDA-Public Use
  Company Number: US-MYLANLABS-2013S1011177

PATIENT
  Age: 58 Year
  Sex: Male
  Weight: 87.09 kg

DRUGS (1)
  1. LEVOTHYROXINE SODIUM TABLETS, USP [Suspect]
     Indication: HYPOTHYROIDISM
     Route: 048
     Dates: start: 20130504, end: 20130504

REACTIONS (3)
  - Palpitations [Recovered/Resolved]
  - Hangover [Not Recovered/Not Resolved]
  - Constipation [Not Recovered/Not Resolved]
